FAERS Safety Report 6172511-2 (Version None)
Quarter: 2009Q2

REPORT INFORMATION
  Report Type: 
  Country: None (occurrence: None)
  Receive Date: 20090429
  Receipt Date: 20090415
  Transmission Date: 20091009
  Serious: No
  Sender: FDA-Public Use
  Company Number: CO-GENENTECH-278363

PATIENT
  Age: 43 Year
  Sex: Female

DRUGS (2)
  1. MABTHERA [Suspect]
     Indication: ARTHRITIS
     Dosage: 1 G, X1
     Route: 042
     Dates: start: 20081001
  2. PREDNISONE [Concomitant]
     Indication: ARTHRITIS
     Dosage: UNK
     Dates: start: 19890101

REACTIONS (3)
  - DYSPNOEA [None]
  - HYPOTENSION [None]
  - OEDEMA PERIPHERAL [None]
